FAERS Safety Report 7103783-5 (Version None)
Quarter: 2010Q4

REPORT INFORMATION
  Report Type: 
  Country: None (occurrence: None)
  Receive Date: 20101115
  Receipt Date: 20080331
  Transmission Date: 20110411
  Serious: No
  Sender: FDA-Public Use
  Company Number: US-KINGPHARMUSA00001-K200800380

PATIENT
  Sex: Male
  Weight: 104.31 kg

DRUGS (4)
  1. ALTACE [Suspect]
     Indication: HYPERTENSION
     Dosage: 5 MG, QD
     Dates: start: 20030101, end: 20080329
  2. HYDROCHLOROTHIAZIDE [Concomitant]
     Dosage: 25 MG, QD
  3. OMEPRAZOLE [Concomitant]
     Dosage: 20 MG, QD
  4. ASPIRIN [Concomitant]
     Dosage: 81 MG, QD

REACTIONS (2)
  - REFLUX GASTRITIS [None]
  - URTICARIA [None]
